FAERS Safety Report 19459685 (Version 2)
Quarter: 2021Q3

REPORT INFORMATION
  Report Type: Spontaneous
  Country: US (occurrence: US)
  Receive Date: 20210624
  Receipt Date: 20210713
  Transmission Date: 20211014
  Serious: Yes (Hospitalization, Other)
  Sender: FDA-Public Use
  Company Number: US-PARI RESPIRATORY EQUIPMENT, INC.-2021PAR00036

PATIENT
  Sex: Female
  Weight: 22.68 kg

DRUGS (24)
  1. CALCIUM CARBONATE. [Concomitant]
     Active Substance: CALCIUM CARBONATE
  2. KITABIS PAK [Suspect]
     Active Substance: TOBRAMYCIN
     Indication: ILLNESS
  3. KITABIS PAK [Suspect]
     Active Substance: TOBRAMYCIN
     Indication: DIGEORGE^S SYNDROME
  4. KITABIS PAK [Suspect]
     Active Substance: TOBRAMYCIN
     Indication: PSEUDOMONAS INFECTION
  5. LMX [Concomitant]
  6. ALBUTEROL SULFATE. [Concomitant]
     Active Substance: ALBUTEROL SULFATE
  7. KITABIS PAK [Suspect]
     Active Substance: TOBRAMYCIN
     Indication: CEREBRAL DISORDER
  8. KITABIS PAK [Suspect]
     Active Substance: TOBRAMYCIN
     Indication: NASOPHARYNGITIS
  9. EPINEPHRINE AUTO?INJECTOR [Concomitant]
     Active Substance: EPINEPHRINE
  10. MULTIVITAMIN [Concomitant]
     Active Substance: VITAMINS
  11. OMEPRAZOLE. [Concomitant]
     Active Substance: OMEPRAZOLE
  12. CALCIUM + D [Concomitant]
     Active Substance: CALCIUM\VITAMIN D
  13. CALCITRIOL. [Concomitant]
     Active Substance: CALCITRIOL
  14. KITABIS PAK [Suspect]
     Active Substance: TOBRAMYCIN
     Indication: CYSTIC FIBROSIS
     Dosage: 300 MG VIA TRACH, 2X/DAY FOR 14 DAYS ON AND 14 DAYS OFF
     Dates: start: 2018
  15. MELATONIN [Concomitant]
     Active Substance: MELATONIN
  16. VITAMIN D3 [Concomitant]
     Active Substance: CHOLECALCIFEROL
  17. DIPHENHYDRAMINE. [Concomitant]
     Active Substance: DIPHENHYDRAMINE
  18. NYSTATIN POWDER [Concomitant]
     Active Substance: NYSTATIN
  19. KEPPRA [Concomitant]
     Active Substance: LEVETIRACETAM
  20. KITABIS PAK [Suspect]
     Active Substance: TOBRAMYCIN
     Indication: CONGENITAL ANOMALY
  21. HIZENTRA [Concomitant]
     Active Substance: HUMAN IMMUNOGLOBULIN G
  22. AMOXICILLIN. [Concomitant]
     Active Substance: AMOXICILLIN
  23. KITABIS PAK [Suspect]
     Active Substance: TOBRAMYCIN
     Indication: IMMUNODEFICIENCY
     Dosage: 300 MG VIA TRACH, 2X/DAY FOR 14 DAYS ON AND 14 DAYS OFF
  24. SYMBICORT HFA AER [Concomitant]

REACTIONS (6)
  - T-lymphocyte count increased [Not Recovered/Not Resolved]
  - Rhinovirus infection [Recovered/Resolved]
  - Traumatic lung injury [Unknown]
  - Off label use [Not Recovered/Not Resolved]
  - Tracheo-oesophageal fistula [Recovered/Resolved]
  - Bacterial infection [Recovered/Resolved]

NARRATIVE: CASE EVENT DATE: 2018
